FAERS Safety Report 17222597 (Version 2)
Quarter: 2020Q1

REPORT INFORMATION
  Report Type: Spontaneous
  Country: JP (occurrence: JP)
  Receive Date: 20200102
  Receipt Date: 20200109
  Transmission Date: 20200409
  Serious: Yes (Hospitalization, Other)
  Sender: FDA-Public Use
  Company Number: JP-BRISTOL-MYERS SQUIBB COMPANY-BMS-2019-007485

PATIENT
  Age: 57 Year
  Sex: Male
  Weight: 44.1 kg

DRUGS (8)
  1. OPDIVO [Suspect]
     Active Substance: NIVOLUMAB
     Indication: PRODUCT USED FOR UNKNOWN INDICATION
     Dosage: 156 MILLIGRAM
     Route: 041
     Dates: start: 20180405, end: 20180906
  2. PACLITAXEL. [Suspect]
     Active Substance: PACLITAXEL
     Indication: PRODUCT USED FOR UNKNOWN INDICATION
     Dosage: UNK
     Route: 065
     Dates: start: 20181025
  3. CETUXIMAB. [Suspect]
     Active Substance: CETUXIMAB
     Indication: PRODUCT USED FOR UNKNOWN INDICATION
     Dosage: UNK
     Route: 065
     Dates: start: 20181025
  4. LEUCON [ADENINE] [Suspect]
     Active Substance: ADENINE
     Indication: EOSINOPENIA
     Dosage: 20 MILLIGRAM, Q8H
     Route: 048
     Dates: start: 20181206
  5. OPDIVO [Suspect]
     Active Substance: NIVOLUMAB
     Indication: HEAD AND NECK CANCER
     Dosage: 157.2 MILLIGRAM
     Route: 041
     Dates: start: 20180206, end: 20180322
  6. FEXOFENADINE HYDROCHLORIDE. [Concomitant]
     Active Substance: FEXOFENADINE HYDROCHLORIDE
     Indication: PRODUCT USED FOR UNKNOWN INDICATION
     Dosage: 60 MILLIGRAM, Q12H
     Route: 048
     Dates: start: 20181025, end: 20181218
  7. MINOCYCLINE HYDROCHLORIDE NICHIIKO [Suspect]
     Active Substance: MINOCYCLINE HYDROCHLORIDE
     Indication: PRODUCT USED FOR UNKNOWN INDICATION
     Dosage: 100 MILLIGRAM, Q12H
     Route: 048
     Dates: start: 20181025, end: 20181218
  8. AZUNOL GARGLE LIQUID [Concomitant]
     Indication: PRODUCT USED FOR UNKNOWN INDICATION
     Dosage: UNK
     Route: 002
     Dates: start: 20180423

REACTIONS (6)
  - Hypothyroidism [Not Recovered/Not Resolved]
  - Periodontitis [Unknown]
  - Prescribed overdose [Unknown]
  - Leukopenia [Recovered/Resolved]
  - Stevens-Johnson syndrome [Recovered/Resolved]
  - Febrile neutropenia [Unknown]

NARRATIVE: CASE EVENT DATE: 20180322
